FAERS Safety Report 10287996 (Version 3)
Quarter: 2014Q3

REPORT INFORMATION
  Report Type: Spontaneous
  Country: US (occurrence: None)
  Receive Date: 20140707
  Receipt Date: 20140806
  Transmission Date: 20150326
  Serious: Yes (Other)
  Sender: FDA-Public Use
  Company Number: UNT-2014-003143

PATIENT
  Age: 62 Year
  Sex: Male
  Weight: 68.9 kg

DRUGS (3)
  1. TYVASO [Suspect]
     Active Substance: TREPROSTINIL
     Indication: COR PULMONALE CHRONIC
     Route: 055
     Dates: start: 20140612
  2. REMODULIN [Suspect]
     Active Substance: TREPROSTINIL
     Indication: PRODUCT USED FOR UNKNOWN INDICATION
     Route: 058
  3. SILDENAFIL (SILDENAFIL) [Concomitant]
     Active Substance: SILDENAFIL

REACTIONS (12)
  - Chest discomfort [None]
  - Arthralgia [None]
  - Chest pain [None]
  - Bone pain [None]
  - Liver transplant [None]
  - Headache [None]
  - Diarrhoea [None]
  - Muscle spasms [None]
  - Oxygen saturation decreased [None]
  - Burning sensation [None]
  - Oropharyngeal pain [None]
  - Tremor [None]

NARRATIVE: CASE EVENT DATE: 2014
